FAERS Safety Report 9639469 (Version 3)
Quarter: 2013Q4

REPORT INFORMATION
  Report Type: Spontaneous
  Country: US (occurrence: US)
  Receive Date: 20131023
  Receipt Date: 20131127
  Transmission Date: 20140711
  Serious: Yes (Death, Other)
  Sender: FDA-Public Use
  Company Number: US-AMGEN-USASP2013074345

PATIENT
  Age: 80 Year
  Sex: Male
  Weight: 77.55 kg

DRUGS (24)
  1. PROCRIT [Suspect]
     Indication: RENAL FAILURE CHRONIC
     Dosage: 40000 UNIT, Q3WK
     Route: 065
  2. PROCRIT [Suspect]
     Indication: NEPHROGENIC ANAEMIA
  3. CALCITRIOL [Concomitant]
     Dosage: UNK
  4. KLOR-CON [Concomitant]
     Dosage: UNK
  5. ASPIRIN [Concomitant]
     Dosage: UNK
  6. FISH OIL [Concomitant]
     Dosage: UNK
  7. ALPRAZOLAM [Concomitant]
     Dosage: UNK
  8. DILTIAZEM [Concomitant]
     Dosage: UNK
  9. TRAMADOL [Concomitant]
     Dosage: UNK
  10. CALCIUM [Concomitant]
     Dosage: UNK
  11. VITAMIN D                          /00107901/ [Concomitant]
     Dosage: UNK
  12. ALBUTEROL                          /00139501/ [Concomitant]
     Dosage: UNK
  13. COLACE [Concomitant]
     Dosage: UNK
  14. PROBIOTIC                          /06395501/ [Concomitant]
     Dosage: UNK
  15. B-12 [Concomitant]
     Dosage: UNK
  16. BENICAR [Concomitant]
  17. RESTORIL                           /00054301/ [Concomitant]
     Dosage: UNK
  18. NASONEX [Concomitant]
  19. FLOMAX                             /00889901/ [Concomitant]
     Dosage: UNK
  20. PROTONIX [Concomitant]
     Dosage: UNK
  21. CRESTOR [Concomitant]
     Dosage: UNK
  22. REQUIP [Concomitant]
     Dosage: UNK
  23. BUMEX [Concomitant]
     Dosage: UNK
  24. VITAMIN C                          /00008001/ [Concomitant]
     Dosage: UNK

REACTIONS (8)
  - Death [Fatal]
  - Haemoglobin abnormal [Unknown]
  - Aplasia pure red cell [Unknown]
  - Blood creatinine abnormal [Unknown]
  - Blood erythropoietin decreased [Unknown]
  - Drug ineffective [Unknown]
  - Fibrin D dimer increased [Unknown]
  - Malaise [Unknown]
